FAERS Safety Report 6824820-9 (Version None)
Quarter: 2010Q3

REPORT INFORMATION
  Report Type: 
  Country: None (occurrence: None)
  Receive Date: 20100708
  Receipt Date: 20061115
  Transmission Date: 20110219
  Serious: No
  Sender: FDA-Public Use
  Company Number: US-PFIZER INC-2006147669

PATIENT
  Age: 58 Year
  Sex: Female
  Weight: 86.18 kg

DRUGS (17)
  1. CHANTIX [Suspect]
     Indication: SMOKING CESSATION THERAPY
     Route: 048
     Dates: start: 20061109
  2. NITROGLYCERIN [Concomitant]
     Route: 061
  3. NORVASC [Concomitant]
     Route: 048
  4. NEXIUM [Concomitant]
     Route: 048
  5. ELAVIL [Concomitant]
     Route: 048
  6. PLAVIX [Concomitant]
     Route: 048
  7. ACETYLSALICYLIC ACID [Concomitant]
     Route: 048
  8. LOPRESSOR [Concomitant]
     Route: 048
  9. ZYRTEC [Concomitant]
     Route: 048
  10. LASIX [Concomitant]
     Route: 048
  11. POTASSIUM CHLORIDE [Concomitant]
     Route: 048
  12. VYTORIN [Concomitant]
     Route: 048
  13. IMDUR [Concomitant]
     Route: 048
  14. CLONOPIN [Concomitant]
     Route: 048
  15. RANEXA [Concomitant]
     Route: 048
  16. CARDIZEM CD [Concomitant]
     Route: 048
  17. PROZAC [Concomitant]
     Route: 048

REACTIONS (2)
  - ABNORMAL DREAMS [None]
  - FLATULENCE [None]
